FAERS Safety Report 5554924-2 (Version None)
Quarter: 2007Q4

REPORT INFORMATION
  Report Type: 
  Country: None (occurrence: None)
  Receive Date: 20071211
  Receipt Date: 20071126
  Transmission Date: 20080405
  Serious: Yes (Other)
  Sender: FDA-Public Use
  Company Number: 160742USA

PATIENT
  Age: 31 Year
  Sex: Male
  Weight: 81.6475 kg

DRUGS (3)
  1. CLOZAPINE [Suspect]
     Indication: SCHIZOPHRENIA
     Dosage: 300 MG (300 MG, 1 IN 1 D), ORAL
     Route: 048
     Dates: start: 20070711, end: 20070825
  2. BENZTROPINE MESYLATE [Concomitant]
  3. BACTRIM [Concomitant]

REACTIONS (2)
  - BRUGADA SYNDROME [None]
  - REFUSAL OF TREATMENT BY PATIENT [None]
